FAERS Safety Report 4376503-5 (Version None)
Quarter: 2004Q2

REPORT INFORMATION
  Report Type: 
  Country: None (occurrence: None)
  Receive Date: 20040614
  Receipt Date: 20040609
  Transmission Date: 20050107
  Serious: Yes (Other)
  Sender: FDA-Public Use
  Company Number: 200414410US

PATIENT
  Sex: Male

DRUGS (6)
  1. TAXOTERE [Suspect]
     Indication: PROSTATE CANCER
     Route: 042
     Dates: start: 20030516, end: 20030902
  2. ESTRAMUSTINE [Concomitant]
     Indication: PROSTATE CANCER
     Dosage: DOSE: UNK
  3. ATENOLOL [Concomitant]
     Route: 048
  4. HYDROCHLOROTHIAZIDE [Concomitant]
     Route: 048
  5. ASPIRIN [Concomitant]
     Route: 048
  6. CELLUVISC [Concomitant]
     Dosage: DOSE: 1 DROP EACH EYE
     Route: 031

REACTIONS (5)
  - DACRYOSTENOSIS ACQUIRED [None]
  - HAEMATOCRIT DECREASED [None]
  - HAEMOGLOBIN DECREASED [None]
  - KERATOCONJUNCTIVITIS SICCA [None]
  - WHITE BLOOD CELL COUNT INCREASED [None]
